FAERS Safety Report 9617742 (Version 1)
Quarter: 2013Q4

REPORT INFORMATION
  Report Type: Spontaneous
  Country: SE (occurrence: SE)
  Receive Date: 20131011
  Receipt Date: 20131011
  Transmission Date: 20140711
  Serious: Yes (Hospitalization)
  Sender: FDA-Public Use
  Company Number: PHHY2013SE110906

PATIENT
  Age: 62 Year
  Sex: Female

DRUGS (3)
  1. ENALAPRIL SANDOZ [Suspect]
     Dosage: 10 MG, QD2SDO
     Route: 048
     Dates: start: 2000, end: 20130808
  2. PROPAVAN [Concomitant]
     Dosage: 25 MG, UNK
  3. SALURES [Concomitant]
     Dosage: 5 MG, UNK

REACTIONS (8)
  - Psoriatic arthropathy [Recovered/Resolved with Sequelae]
  - Arrhythmia [Recovered/Resolved]
  - Vision blurred [Recovered/Resolved with Sequelae]
  - Dizziness [Recovered/Resolved with Sequelae]
  - Insomnia [Recovered/Resolved with Sequelae]
  - Erythema [Recovered/Resolved with Sequelae]
  - Skin exfoliation [Recovered/Resolved with Sequelae]
  - Tachycardia [Recovered/Resolved]
